FAERS Safety Report 14873445 (Version 2)
Quarter: 2018Q2

REPORT INFORMATION
  Report Type: Spontaneous
  Country: ES (occurrence: ES)
  Receive Date: 20180510
  Receipt Date: 20180626
  Transmission Date: 20180711
  Serious: Yes (Other)
  Sender: FDA-Public Use
  Company Number: ES-SUN PHARMACEUTICAL INDUSTRIES LTD-2018R1-172411

PATIENT
  Age: 53 Year
  Sex: Male

DRUGS (10)
  1. IRBESTAN/HYDROCHLOROTHIAZIDE [Concomitant]
     Indication: HYPERTENSION
     Dosage: IRBESTAN/HYDROCHLOROTHIAZIDE (1250/12.5 MG, RESPECTIVELY)
     Route: 065
  2. TEMOZOLOMIDE. [Suspect]
     Active Substance: TEMOZOLOMIDE
     Indication: PARAGANGLION NEOPLASM MALIGNANT
     Dosage: UNK
     Route: 065
  3. PROPRANOLOL [Concomitant]
     Active Substance: PROPRANOLOL HYDROCHLORIDE
     Indication: HYPERTENSION
     Dosage: 240 MG, DAILY
     Route: 065
     Dates: start: 201605
  4. PROPRANOLOL [Concomitant]
     Active Substance: PROPRANOLOL HYDROCHLORIDE
     Dosage: 120 MG, DAILY
     Route: 065
     Dates: start: 201506, end: 201605
  5. DENOSUMAB [Concomitant]
     Active Substance: DENOSUMAB
     Indication: PARAGANGLION NEOPLASM MALIGNANT
     Dosage: UNK
     Route: 065
  6. DENOSUMAB [Concomitant]
     Active Substance: DENOSUMAB
     Indication: PANCREATIC NEUROENDOCRINE TUMOUR METASTATIC
     Dosage: 120 MG EVERY 28 DAYS
     Route: 065
  7. SOMATULINA AUTOGEL 120MG [Suspect]
     Active Substance: LANREOTIDE ACETATE
     Indication: PANCREATIC NEUROENDOCRINE TUMOUR METASTATIC
     Dosage: 120 MG/14
     Route: 065
     Dates: start: 201411, end: 2016
  8. TEMOZOLOMIDE. [Suspect]
     Active Substance: TEMOZOLOMIDE
     Indication: PANCREATIC NEUROENDOCRINE TUMOUR METASTATIC
     Dosage: 75 MG/M2, DAILY; 75 MG/M2, FOR 21 DAYS EVERY 28 DAYS; CYCLICAL
     Route: 065
     Dates: start: 201605, end: 201707
  9. SOMATULINA AUTOGEL 120MG [Suspect]
     Active Substance: LANREOTIDE ACETATE
     Indication: PARAGANGLION NEOPLASM MALIGNANT
     Dosage: 120 MG, 3/WEEK
     Route: 065
     Dates: start: 201411, end: 2016
  10. DOXAZOSIN [Concomitant]
     Active Substance: DOXAZOSIN\DOXAZOSIN MESYLATE
     Indication: HYPERTENSION
     Dosage: 8 MG, DAILY
     Route: 065
     Dates: start: 2014

REACTIONS (8)
  - Off label use [Unknown]
  - Diarrhoea [Unknown]
  - Lymphopenia [Unknown]
  - Hyperglycaemia [Unknown]
  - Nausea [Unknown]
  - Vomiting [Unknown]
  - Inappropriate schedule of drug administration [Unknown]
  - Thrombocytopenia [Unknown]

NARRATIVE: CASE EVENT DATE: 2016
